FAERS Safety Report 8530264-4 (Version None)
Quarter: 2012Q3

REPORT INFORMATION
  Report Type: 
  Country: None (occurrence: None)
  Receive Date: 20120723
  Receipt Date: 20120714
  Transmission Date: 20120928
  Serious: Yes (Other)
  Sender: FDA-Public Use
  Company Number: US-JNJFOC-20120708040

PATIENT
  Sex: Female

DRUGS (1)
  1. DURAGESIC-100 [Suspect]
     Indication: PRODUCT USED FOR UNKNOWN INDICATION
     Route: 062
     Dates: start: 20120101

REACTIONS (4)
  - BLINDNESS UNILATERAL [None]
  - HYPERHIDROSIS [None]
  - DIPLOPIA [None]
  - PRODUCT QUALITY ISSUE [None]
